FAERS Safety Report 20759384 (Version 1)
Quarter: 2022Q2

REPORT INFORMATION
  Report Type: Spontaneous
  Country: US (occurrence: US)
  Receive Date: 20220427
  Receipt Date: 20220427
  Transmission Date: 20220720
  Serious: No
  Sender: FDA-Public Use
  Company Number: US-BioHaven Pharmaceuticals-2022BHV000260

PATIENT
  Age: 51 Year
  Sex: Female

DRUGS (1)
  1. NURTEC ODT [Suspect]
     Active Substance: RIMEGEPANT SULFATE
     Indication: Migraine
     Dosage: THE MOST RECENT REFILL WAS SENT ON 10-NOV-2021
     Route: 065
     Dates: start: 202111, end: 202112

REACTIONS (2)
  - Drug ineffective [Unknown]
  - Rash [Recovered/Resolved]

NARRATIVE: CASE EVENT DATE: 20211101
